FAERS Safety Report 6858918-6 (Version None)
Quarter: 2010Q3

REPORT INFORMATION
  Report Type: 
  Country: None (occurrence: None)
  Receive Date: 20100719
  Receipt Date: 20080215
  Transmission Date: 20110219
  Serious: No
  Sender: FDA-Public Use
  Company Number: US-PFIZER INC-2008016602

PATIENT
  Sex: Female

DRUGS (6)
  1. CHANTIX [Suspect]
     Indication: SMOKING CESSATION THERAPY
     Dates: start: 20080205
  2. LOTREL [Concomitant]
     Route: 048
     Dates: start: 20020101
  3. ZOCOR [Concomitant]
     Route: 048
     Dates: start: 20020101
  4. ACETYLSALICYLIC ACID [Concomitant]
     Route: 048
     Dates: start: 20060101
  5. METOPROLOL [Concomitant]
     Route: 048
  6. PREDNISONE [Concomitant]

REACTIONS (4)
  - ABDOMINAL DISCOMFORT [None]
  - ABNORMAL DREAMS [None]
  - MEDICATION ERROR [None]
  - NAUSEA [None]
